FAERS Safety Report 9314291 (Version 1)
Quarter: 2013Q2

REPORT INFORMATION
  Report Type: Report from Study
  Country: US (occurrence: US)
  Receive Date: 20130529
  Receipt Date: 20130529
  Transmission Date: 20140414
  Serious: Yes (Other)
  Sender: FDA-Public Use
  Company Number: PHEH2013US011521

PATIENT
  Age: 64 Year
  Sex: Female

DRUGS (4)
  1. GILENYA [Suspect]
     Indication: MULTIPLE SCLEROSIS
     Dosage: 0.5 MG, QD
     Route: 048
     Dates: start: 20121113
  2. GABAPENTIN [Concomitant]
  3. OXYBUTIN [Concomitant]
  4. METAMIZOLE [Concomitant]

REACTIONS (3)
  - Basedow^s disease [Unknown]
  - Dysgraphia [Unknown]
  - Tremor [Unknown]
